FAERS Safety Report 5027903-1 (Version None)
Quarter: 2006Q2

REPORT INFORMATION
  Report Type: 
  Country: None (occurrence: None)
  Receive Date: 20060616
  Receipt Date: 20060607
  Transmission Date: 20061013
  Serious: Yes (Hospitalization)
  Sender: FDA-Public Use
  Company Number: JP-MERCK-0606USA01832

PATIENT
  Age: 82 Year
  Sex: Female

DRUGS (1)
  1. INDOCIN [Suspect]
     Route: 054

REACTIONS (3)
  - GASTROINTESTINAL EROSION [None]
  - SMALL INTESTINAL HAEMORRHAGE [None]
  - SMALL INTESTINAL STENOSIS [None]
